FAERS Safety Report 7358876-4 (Version None)
Quarter: 2011Q1

REPORT INFORMATION
  Report Type: 
  Country: None (occurrence: None)
  Receive Date: 20110317
  Receipt Date: 20110315
  Transmission Date: 20110831
  Serious: No
  Sender: FDA-Public Use
  Company Number: US-PFIZER INC-2011057526

PATIENT
  Sex: Female
  Weight: 86.168 kg

DRUGS (3)
  1. ST. JOHN'S WORT [Concomitant]
     Indication: HORMONE THERAPY
     Dosage: UNK
     Dates: start: 20110201, end: 20110301
  2. PRISTIQ [Suspect]
     Indication: ANXIETY
     Dosage: 50 MG, 1X/DAY
     Route: 048
  3. PREMARIN [Concomitant]
     Indication: HORMONE REPLACEMENT THERAPY
     Dosage: 0.625 MG, 1X/DAY
     Route: 048

REACTIONS (1)
  - PANIC ATTACK [None]
